FAERS Safety Report 8479700-2 (Version None)
Quarter: 2012Q2

REPORT INFORMATION
  Report Type: 
  Country: None (occurrence: None)
  Receive Date: 20120629
  Receipt Date: 20120620
  Transmission Date: 20120825
  Serious: Yes (Other)
  Sender: FDA-Public Use
  Company Number: US-ABBOTT-12P-163-0948622-00

PATIENT
  Age: 52 Year
  Sex: Female

DRUGS (9)
  1. LISINOPRIL [Concomitant]
     Indication: PROPHYLAXIS
  2. LANTUS [Concomitant]
     Indication: DIABETES MELLITUS
     Dosage: INSULIN, AT NIGHT
  3. JUNUVIA [Concomitant]
     Indication: DIABETES MELLITUS
     Dosage: IN THE MORNING
  4. LISINOPRIL [Concomitant]
     Indication: RENAL DISORDER
  5. HUMIRA [Suspect]
     Indication: PSORIASIS
     Dates: start: 20120201
  6. METOPROLOL SUCCINATE [Concomitant]
     Indication: CARDIAC DISORDER
  7. ASPIRIN [Concomitant]
     Indication: CARDIAC DISORDER
  8. METFORMIN HCL [Concomitant]
     Indication: DIABETES MELLITUS
  9. LISINOPRIL [Concomitant]
     Indication: DIABETES MELLITUS

REACTIONS (1)
  - EXOSTOSIS [None]
